FAERS Safety Report 14368548 (Version 18)
Quarter: 2020Q1

REPORT INFORMATION
  Report Type: Report from Study
  Country: US (occurrence: US)
  Receive Date: 20180109
  Receipt Date: 20200117
  Transmission Date: 20200409
  Serious: Yes (Hospitalization)
  Sender: FDA-Public Use
  Company Number: US-ACTELION-A-NJ2016-136816

PATIENT
  Age: 70 Year
  Sex: Female
  Weight: 77.1 kg

DRUGS (16)
  1. TRACLEER [Suspect]
     Active Substance: BOSENTAN
     Dosage: 125 MG, BID
     Route: 048
  2. WARFARIN [Concomitant]
     Active Substance: WARFARIN
  3. CARVEDILOL. [Concomitant]
     Active Substance: CARVEDILOL
  4. ORENITRAM [Suspect]
     Active Substance: TREPROSTINIL
     Dosage: 2.5 MG, BID
     Route: 048
  5. CITALOPRAM HYDROBROMIDE. [Concomitant]
     Active Substance: CITALOPRAM HYDROBROMIDE
  6. LEVOTHYROXINE. [Concomitant]
     Active Substance: LEVOTHYROXINE
  7. METFORMIN [Concomitant]
     Active Substance: METFORMIN HYDROCHLORIDE
  8. DILTIAZEM. [Concomitant]
     Active Substance: DILTIAZEM
  9. AMIODARONE [Concomitant]
     Active Substance: AMIODARONE
  10. ADCIRCA [Concomitant]
     Active Substance: TADALAFIL
  11. SPIRONOLACTONE. [Concomitant]
     Active Substance: SPIRONOLACTONE
  12. TRACLEER [Suspect]
     Active Substance: BOSENTAN
     Indication: PULMONARY HYPERTENSION
     Dosage: 125 MG, BID
     Route: 048
     Dates: start: 20110408
  13. ORENITRAM [Suspect]
     Active Substance: TREPROSTINIL
     Indication: PRODUCT USED FOR UNKNOWN INDICATION
     Dosage: 1.25 MG, BID
     Route: 048
  14. ROSUVASTATIN CALCIUM. [Concomitant]
     Active Substance: ROSUVASTATIN CALCIUM
  15. ORENITRAM [Suspect]
     Active Substance: TREPROSTINIL
     Dosage: 1 MG, BID
     Route: 048
  16. OMEPRAZOLE. [Concomitant]
     Active Substance: OMEPRAZOLE

REACTIONS (25)
  - Atrial fibrillation [Unknown]
  - Oropharyngeal pain [Unknown]
  - Tachycardia [Unknown]
  - Gastrooesophageal reflux disease [Unknown]
  - Dyspnoea exertional [Unknown]
  - Vomiting [Recovering/Resolving]
  - Arthropathy [Recovering/Resolving]
  - Flushing [Unknown]
  - Palpitations [Not Recovered/Not Resolved]
  - Influenza [Unknown]
  - Respiration abnormal [Unknown]
  - Blood pressure decreased [Unknown]
  - Diarrhoea [Unknown]
  - Knee arthroplasty [Recovering/Resolving]
  - Somnolence [Unknown]
  - Headache [Unknown]
  - Dyspnoea at rest [Unknown]
  - Nasopharyngitis [Unknown]
  - Migraine [Recovering/Resolving]
  - Pneumonia [Unknown]
  - Bronchitis [Unknown]
  - Dyspnoea [Not Recovered/Not Resolved]
  - Pneumonia influenzal [Unknown]
  - Cardiac failure congestive [Unknown]
  - Pain [Unknown]

NARRATIVE: CASE EVENT DATE: 20190930
